FAERS Safety Report 8943295 (Version 1)
Quarter: 2012Q4

REPORT INFORMATION
  Report Type: 
  Country: US (occurrence: US)
  Receive Date: 20121204
  Receipt Date: 20121204
  Transmission Date: 20130627
  Serious: Yes (Other)
  Sender: FDA-Public Use
  Company Number: US-SANOFI-AVENTIS-2012SA038484

PATIENT
  Sex: Female

DRUGS (2)
  1. LANTUS [Suspect]
     Indication: TYPE II DIABETES MELLITUS
     Route: 058
     Dates: end: 2011
  2. NOVOLOG [Suspect]
     Dosage: Dose:7 unit(s)
     Route: 065

REACTIONS (5)
  - Cataract [Unknown]
  - Glaucoma [Unknown]
  - Eye haemorrhage [Unknown]
  - Injection site pain [Unknown]
  - Incorrect dose administered [Unknown]
